FAERS Safety Report 17128912 (Version 12)
Quarter: 2020Q1

REPORT INFORMATION
  Report Type: Report from Study
  Country: JP (occurrence: JP)
  Receive Date: 20191209
  Receipt Date: 20200129
  Transmission Date: 20200409
  Serious: Yes (Hospitalization)
  Sender: FDA-Public Use
  Company Number: JP-EISAI MEDICAL RESEARCH-EC-2019-066666

PATIENT
  Age: 80 Year
  Sex: Female
  Weight: 67.1 kg

DRUGS (10)
  1. LOXOPROFEN EMC [Concomitant]
     Dates: start: 20191126, end: 20191204
  2. REZALTAS [Concomitant]
     Active Substance: AZELNIDIPINE\OLMESARTAN MEDOXOMIL
     Dates: start: 20191016
  3. SENNOSIDE TOWA [Concomitant]
     Dates: start: 20191126, end: 20191223
  4. PEMBROLIZUMAB. [Suspect]
     Active Substance: PEMBROLIZUMAB
     Indication: NON-SMALL CELL LUNG CANCER METASTATIC
     Route: 041
     Dates: start: 20191107, end: 20191107
  5. ECLAR [Concomitant]
     Active Substance: DEPRODONE PROPIONATE
     Dates: start: 201909
  6. SMILE 40 EX [Concomitant]
     Active Substance: CHLORPHENIRAMINE\NEOSTIGMINE METILSULFATE\POTASSIUM\TETRAHYDROZOLINE\VITAMINS
     Dates: start: 201901
  7. LENVATINIB [Suspect]
     Active Substance: LENVATINIB
     Indication: NON-SMALL CELL LUNG CANCER METASTATIC
     Route: 048
     Dates: start: 20191107, end: 20200117
  8. PEMBROLIZUMAB. [Suspect]
     Active Substance: PEMBROLIZUMAB
     Route: 041
     Dates: start: 20191126, end: 20191126
  9. MAGNESIUM OXIDE KENEI [Concomitant]
     Dates: start: 20191106
  10. DILTIAZEM HYDROCHLORIDE. [Concomitant]
     Active Substance: DILTIAZEM HYDROCHLORIDE
     Dates: start: 20191111, end: 20191215

REACTIONS (1)
  - Pyrexia [Recovered/Resolved]

NARRATIVE: CASE EVENT DATE: 20191202
